FAERS Safety Report 5468648-3 (Version None)
Quarter: 2007Q3

REPORT INFORMATION
  Report Type: 
  Country: None (occurrence: None)
  Receive Date: 20070926
  Receipt Date: 20070921
  Transmission Date: 20080115
  Serious: Yes (Other)
  Sender: FDA-Public Use
  Company Number: B0488537A

PATIENT
  Sex: Female

DRUGS (1)
  1. NIQUITIN CQ GUM 2MG [Suspect]
     Dosage: 2MG FIVE TIMES PER DAY
     Route: 002

REACTIONS (2)
  - DEPENDENCE [None]
  - LOWER RESPIRATORY TRACT INFECTION [None]
